FAERS Safety Report 7058137-7 (Version None)
Quarter: 2010Q4

REPORT INFORMATION
  Report Type: 
  Country: None (occurrence: None)
  Receive Date: 20101022
  Receipt Date: 20101020
  Transmission Date: 20110411
  Serious: Yes (Other)
  Sender: FDA-Public Use
  Company Number: US-BRISTOL-MYERS SQUIBB COMPANY-15339179

PATIENT
  Sex: Male

DRUGS (5)
  1. CISPLATIN [Suspect]
     Indication: MEDULLOBLASTOMA
     Dosage: 1 DF=157.5 MG/M SUP(2) CUMULATIVE DOSE.
  2. ETOPOSIDE [Suspect]
     Indication: MEDULLOBLASTOMA
     Dosage: 1 DF=600 MG/M2 (CUMULATIVE DOSE)
  3. CYCLOPHOSPHAMIDE [Suspect]
     Indication: MEDULLOBLASTOMA
     Dosage: 1 DF=16000 MG/M SUP(2) CUMULATIVE DOSE
  4. VINCRISTINE SULFATE [Suspect]
     Indication: MEDULLOBLASTOMA
     Dosage: 1 DF=16 MG/M2 (CUMULATIVE DOSE)
  5. RADIATION THERAPY [Suspect]
     Indication: MEDULLOBLASTOMA
     Dosage: 1 DF=CRANIOSPINAL AXIS (TOTAL 3.520CGY);POSTERIOR FOSSA BOOST (TOTAL DOSE 5,320 CGY)

REACTIONS (13)
  - ALOPECIA [None]
  - ATROPHY [None]
  - CATARACT [None]
  - COGNITIVE DISORDER [None]
  - DEPRESSION [None]
  - GROWTH HORMONE DEFICIENCY [None]
  - HEARING IMPAIRED [None]
  - HYPOTHYROIDISM [None]
  - INFERTILITY [None]
  - MELANOCYTIC NAEVUS [None]
  - NEPHROPATHY TOXIC [None]
  - OSTEOPENIA [None]
  - THYROID CANCER [None]
